FAERS Safety Report 4569463-5 (Version None)
Quarter: 2005Q1

REPORT INFORMATION
  Report Type: 
  Country: None (occurrence: None)
  Receive Date: 20050201
  Receipt Date: 20050119
  Transmission Date: 20050727
  Serious: Yes (Other)
  Sender: FDA-Public Use
  Company Number: 2005016421

PATIENT
  Age: 64 Year
  Sex: Female
  Weight: 77.1115 kg

DRUGS (2)
  1. CELEBREX [Suspect]
     Indication: OSTEOARTHRITIS
     Dosage: 200 MG (200 MG, 1 IN 1 D), ORAL
     Route: 048
     Dates: start: 20000101
  2. DIOVAN HCT [Concomitant]

REACTIONS (6)
  - ARTHRALGIA [None]
  - BRONCHITIS [None]
  - DIFFICULTY IN WALKING [None]
  - HYPOTENSION [None]
  - PHARYNGOLARYNGEAL PAIN [None]
  - TREATMENT NONCOMPLIANCE [None]
